FAERS Safety Report 6326535-2 (Version None)
Quarter: 2009Q3

REPORT INFORMATION
  Report Type: 
  Country: None (occurrence: None)
  Receive Date: 20090825
  Receipt Date: 20090725
  Transmission Date: 20100115
  Serious: No
  Sender: FDA-Public Use
  Company Number: US-BAYER-200927960GPV

PATIENT
  Age: 65 Year
  Sex: Female

DRUGS (8)
  1. SORAFENIB [Suspect]
     Indication: DRUG USE FOR UNKNOWN INDICATION
     Dosage: TOTAL DAILY DOSE: 400 MG
     Route: 065
  2. SORAFENIB [Suspect]
     Dosage: TOTAL DAILY DOSE: 800 MG
     Route: 065
  3. OMEPRAZOLE [Concomitant]
     Indication: DYSPEPSIA
  4. LEVOTHYROXINE SODIUM [Concomitant]
     Indication: HYPOTHYROIDISM
     Dosage: AS USED: 175 ?G/D
     Route: 065
  5. SUNITINIB [Concomitant]
     Indication: DRUG USE FOR UNKNOWN INDICATION
     Dosage: TOTAL DAILY DOSE: 50 MG/D
     Route: 048
  6. LISINOPRIL [Concomitant]
     Indication: CARDIAC FAILURE
     Route: 065
  7. CARVEDILOL [Concomitant]
     Indication: CARDIAC FAILURE
     Route: 065
  8. FUROSEMIDE [Concomitant]
     Indication: CARDIAC FAILURE
     Route: 065

REACTIONS (1)
  - DIARRHOEA [None]
